FAERS Safety Report 19713234 (Version 2)
Quarter: 2021Q3

REPORT INFORMATION
  Report Type: Report from Study
  Country: None (occurrence: US)
  Receive Date: 20210816
  Receipt Date: 20210831
  Transmission Date: 20211014
  Serious: No
  Sender: FDA-Public Use
  Company Number: US-ABBVIE-21K-163-4034984-00

PATIENT
  Age: 72 Year
  Sex: Male
  Weight: 89.89 kg

DRUGS (8)
  1. RINVOQ [Suspect]
     Active Substance: UPADACITINIB
     Indication: RHEUMATOID ARTHRITIS
     Route: 048
     Dates: start: 20210104
  2. PEPCID [Concomitant]
     Active Substance: FAMOTIDINE
     Indication: GASTROOESOPHAGEAL REFLUX DISEASE
  3. REMICADE [Concomitant]
     Active Substance: INFLIXIMAB
     Indication: RHEUMATOID ARTHRITIS
  4. COVID?19 VACCINE [Concomitant]
     Dosage: MODERNA
     Route: 030
     Dates: start: 20210408, end: 20210408
  5. BABY ASPIRIN [Concomitant]
     Active Substance: ASPIRIN
     Indication: CARDIAC DISORDER
  6. METHOTREXATE. [Concomitant]
     Active Substance: METHOTREXATE
     Indication: RHEUMATOID ARTHRITIS
  7. ATORVASTATIN [Concomitant]
     Active Substance: ATORVASTATIN
     Indication: BLOOD CHOLESTEROL
  8. COVID?19 VACCINE [Concomitant]
     Indication: COVID-19 IMMUNISATION
     Dosage: MODERNA
     Route: 030
     Dates: start: 20210311, end: 20210311

REACTIONS (4)
  - Rash [Not Recovered/Not Resolved]
  - Pruritus [Not Recovered/Not Resolved]
  - Impaired healing [Not Recovered/Not Resolved]
  - Acne [Recovering/Resolving]

NARRATIVE: CASE EVENT DATE: 202108
